FAERS Safety Report 8539068 (Version 3)
Quarter: 2014Q3

REPORT INFORMATION
  Report Type: Report from Study
  Country: AT (occurrence: AT)
  Receive Date: 20120501
  Receipt Date: 20140919
  Transmission Date: 20150326
  Serious: Yes (Hospitalization)
  Sender: FDA-Public Use
  Company Number: AT-BRISTOL-MYERS SQUIBB COMPANY-16552226

PATIENT
  Age: 49 Year
  Sex: Male

DRUGS (3)
  1. HYDAL [Concomitant]
     Dates: start: 20120405, end: 20120424
  2. IPILIMUMAB [Suspect]
     Active Substance: IPILIMUMAB
     Indication: MALIGNANT MELANOMA
     Route: 042
     Dates: start: 20120405
  3. NOVALGIN [Concomitant]
     Active Substance: METAMIZOLE SODIUM
     Dates: start: 20120323, end: 20120512

REACTIONS (1)
  - Arthralgia [Recovered/Resolved]

NARRATIVE: CASE EVENT DATE: 20120425
